FAERS Safety Report 20859940 (Version 3)
Quarter: 2022Q2

REPORT INFORMATION
  Report Type: Spontaneous
  Country: US (occurrence: US)
  Receive Date: 20220523
  Receipt Date: 20220607
  Transmission Date: 20220721
  Serious: Yes (Other)
  Sender: FDA-Public Use
  Company Number: US-009507513-2205USA004872

PATIENT
  Age: 76 Year
  Sex: Male

DRUGS (22)
  1. KEYTRUDA [Suspect]
     Active Substance: PEMBROLIZUMAB
     Indication: Hormone-refractory prostate cancer
     Dosage: UNK
     Route: 042
     Dates: start: 20181218, end: 20181218
  2. KEYTRUDA [Suspect]
     Active Substance: PEMBROLIZUMAB
     Dosage: UNK CYCLE 5 DAY 1,
     Dates: start: 20190312, end: 20190312
  3. KEYTRUDA [Suspect]
     Active Substance: PEMBROLIZUMAB
     Dosage: UNK
     Dates: start: 20191022, end: 20191022
  4. KEYTRUDA [Suspect]
     Active Substance: PEMBROLIZUMAB
     Dosage: UNK, CYCLE 14, DAY 1
     Dates: start: 20200317, end: 20200317
  5. KEYTRUDA [Suspect]
     Active Substance: PEMBROLIZUMAB
     Dosage: UNK
     Dates: start: 20210105, end: 20210105
  6. KEYTRUDA [Suspect]
     Active Substance: PEMBROLIZUMAB
     Dosage: UNK, CYCLE 32, DAY1, (C32D1)
     Dates: start: 20210330, end: 20210330
  7. KEYTRUDA [Suspect]
     Active Substance: PEMBROLIZUMAB
     Dosage: UNK, CYCLE 47, DAY 1(C47D1)
     Dates: start: 20220303, end: 20220303
  8. LUPRON [Suspect]
     Active Substance: LEUPROLIDE ACETATE
     Dosage: UNK
     Dates: start: 20190312
  9. LUPRON [Suspect]
     Active Substance: LEUPROLIDE ACETATE
     Dosage: UNK
     Dates: start: 20200317
  10. LUPRON [Suspect]
     Active Substance: LEUPROLIDE ACETATE
     Dosage: UNK
     Dates: start: 20220303, end: 20220303
  11. TYLENOL [Suspect]
     Active Substance: ACETAMINOPHEN
     Indication: Pain
     Dosage: 500 MILLIGRAM,  EVERY 6 HOURS AS NEEDED
     Route: 048
     Dates: start: 20210405
  12. TYLENOL [Suspect]
     Active Substance: ACETAMINOPHEN
     Indication: Pyrexia
  13. XANAX [Suspect]
     Active Substance: ALPRAZOLAM
     Indication: Anxiety
     Dosage: 0.5 MILLIGRAM,  NIGHTLY AS NEEDED
     Route: 048
     Dates: start: 20191119
  14. NORVASC [Suspect]
     Active Substance: AMLODIPINE BESYLATE
     Dosage: 2.5 MILLIGRAM, TAKE 1 TABLET EVERY EVENING
     Route: 048
     Dates: start: 20211117
  15. LIPITOR [Suspect]
     Active Substance: ATORVASTATIN CALCIUM
     Dosage: 40 MILLIGRAM, DAILY
     Route: 048
     Dates: start: 20211104
  16. NEURONTIN [Suspect]
     Active Substance: GABAPENTIN
     Dosage: 200 MILLIGRAM, IN THE MORNING AND 200 MILLIRAM AT BEDTIME
     Dates: start: 20220308
  17. ZOLPIDEM [Suspect]
     Active Substance: ZOLPIDEM TARTRATE
     Dosage: 5 MILLIGRAM,  AS NEEDED FOR SLEEP
     Dates: start: 20200321
  18. MODERNA COVID-19 VACCINE [Suspect]
     Active Substance: ELASOMERAN
     Indication: Prophylaxis
     Dosage: UNK
     Dates: start: 20210304
  19. ASCORBIC ACID [Concomitant]
     Active Substance: ASCORBIC ACID
     Dosage: UNK
  20. VITAMIN D3 [Concomitant]
     Active Substance: CHOLECALCIFEROL
  21. CENTRUM SILVER [ASCORBIC ACID;BETACAROTENE;BIOTIN;CALCIUM;CHROMIUM;COL [Concomitant]
  22. SENNOSIDES A AND B [Concomitant]
     Active Substance: SENNOSIDES A AND B

REACTIONS (35)
  - Nephrostomy [Unknown]
  - Hydronephrosis [Unknown]
  - Urinary tract obstruction [Unknown]
  - Ureteral necrosis [Unknown]
  - Arteriovenous malformation [Unknown]
  - Alpha haemolytic streptococcal infection [Unknown]
  - Haematochezia [Unknown]
  - Chronic kidney disease [Unknown]
  - Polymyalgia rheumatica [Unknown]
  - Malignant neoplasm progression [Unknown]
  - Neurogenic bladder [Unknown]
  - Prostatic specific antigen decreased [Unknown]
  - Onychoclasis [Unknown]
  - Fibromyalgia [Unknown]
  - Inflammation [Unknown]
  - Chromaturia [Recovered/Resolved]
  - Cystitis [Unknown]
  - Osteopenia [Unknown]
  - Reduced bladder capacity [Unknown]
  - Nodule [Unknown]
  - Ureteral stent insertion [Unknown]
  - Ureteral stent removal [Unknown]
  - Intervertebral disc degeneration [Unknown]
  - Radiation proctitis [Unknown]
  - Haematuria [Unknown]
  - Dysuria [Unknown]
  - Oedema peripheral [Unknown]
  - Iron deficiency anaemia [Unknown]
  - Hypersensitivity [Unknown]
  - Nausea [Unknown]
  - Fatigue [Recovered/Resolved]
  - Diarrhoea [Unknown]
  - Rash [Recovered/Resolved]
  - Rash pruritic [Unknown]
  - Product use in unapproved indication [Unknown]

NARRATIVE: CASE EVENT DATE: 20181218
